FAERS Safety Report 4591041-2 (Version None)
Quarter: 2005Q1

REPORT INFORMATION
  Report Type: 
  Country: None (occurrence: None)
  Receive Date: 20050222
  Receipt Date: 20050222
  Transmission Date: 20050727
  Serious: Yes (Hospitalization, Other)
  Sender: FDA-Public Use
  Company Number: None

PATIENT
  Age: 26 Year
  Sex: Male
  Weight: 111.1313 kg

DRUGS (1)
  1. LEVAQUIN [Suspect]
     Indication: SINUSITIS
     Dosage: 1 PER DAY ORAL
     Route: 048
     Dates: start: 20040305, end: 20040315

REACTIONS (16)
  - ANXIETY [None]
  - ARTHRALGIA [None]
  - CHEST PAIN [None]
  - DELIRIUM [None]
  - DELUSION [None]
  - DYSPHAGIA [None]
  - FEELING HOT AND COLD [None]
  - HEADACHE [None]
  - INSOMNIA [None]
  - MYALGIA [None]
  - OROPHARYNGEAL SWELLING [None]
  - PAIN [None]
  - SKIN DISCOLOURATION [None]
  - TACHYCARDIA [None]
  - TENDON DISORDER [None]
  - TREMOR [None]
